FAERS Safety Report 12338941 (Version 3)
Quarter: 2016Q2

REPORT INFORMATION
  Report Type: Spontaneous
  Country: US (occurrence: US)
  Receive Date: 20160505
  Receipt Date: 20160527
  Transmission Date: 20160815
  Serious: Yes (Other)
  Sender: FDA-Public Use
  Company Number: US-PFIZER INC-2016244142

PATIENT
  Age: 50 Year
  Sex: Female

DRUGS (4)
  1. LYRICA [Suspect]
     Active Substance: PREGABALIN
     Indication: BACK PAIN
     Dosage: 150 MG, 3X/DAY
     Route: 048
  2. ALPRAZOLAM. [Suspect]
     Active Substance: ALPRAZOLAM
     Indication: ANXIETY
     Dosage: 1 MG, 3X/DAY
  3. SERTRALINE HCL [Suspect]
     Active Substance: SERTRALINE HYDROCHLORIDE
     Indication: AFFECTIVE DISORDER
     Dosage: 100 MG, 1X/DAY (ONCE A DAY AT NIGHT)
  4. LYRICA [Suspect]
     Active Substance: PREGABALIN
     Indication: PAIN IN EXTREMITY
     Dosage: 150 MG, 2X/DAY
     Route: 048

REACTIONS (16)
  - Back disorder [Unknown]
  - Pollakiuria [Unknown]
  - Amnesia [Not Recovered/Not Resolved]
  - Bone pain [Unknown]
  - Intervertebral disc protrusion [Unknown]
  - Condition aggravated [Not Recovered/Not Resolved]
  - Speech disorder [Unknown]
  - Joint injury [Unknown]
  - Facial paralysis [Unknown]
  - Memory impairment [Not Recovered/Not Resolved]
  - Head injury [Unknown]
  - Abdominal pain upper [Unknown]
  - Fall [Unknown]
  - Paraesthesia [Unknown]
  - Intentional product use issue [Unknown]
  - Somnolence [Not Recovered/Not Resolved]
